FAERS Safety Report 14930930 (Version 1)
Quarter: 2018Q2

REPORT INFORMATION
  Report Type: Spontaneous
  Country: ES (occurrence: ES)
  Receive Date: 20180524
  Receipt Date: 20180524
  Transmission Date: 20180711
  Serious: Yes (Other)
  Sender: FDA-Public Use
  Company Number: ES-TEVA-2018-ES-895842

PATIENT
  Age: 60 Year
  Sex: Male
  Weight: 90 kg

DRUGS (3)
  1. MYFORTIC 360 MG COMPRIMIDOS GASTRORRESISTENTES , 50 COMPRIMIDOS [Concomitant]
     Indication: PROPHYLAXIS AGAINST TRANSPLANT REJECTION
     Route: 048
  2. METFORMIN [Suspect]
     Active Substance: METFORMIN HYDROCHLORIDE
     Indication: DIABETES MELLITUS
     Dosage: 1000 MILLIGRAM DAILY;
     Route: 048
     Dates: start: 20180123, end: 20180202
  3. ADVAGRAF 3 MG 30 CAPSULAS DURAS DE LIBERACION PROLONGADA, 30 C?PSULAS [Concomitant]
     Indication: PROPHYLAXIS AGAINST TRANSPLANT REJECTION
     Dosage: 3 MILLIGRAM DAILY;
     Route: 048

REACTIONS (5)
  - Diplopia [Recovered/Resolved]
  - Gait disturbance [Recovered/Resolved]
  - Polydipsia [Recovered/Resolved]
  - Dyschromatopsia [Recovered/Resolved]
  - Polyuria [Recovered/Resolved]

NARRATIVE: CASE EVENT DATE: 20180123
